FAERS Safety Report 16664488 (Version 3)
Quarter: 2019Q4

REPORT INFORMATION
  Report Type: Spontaneous
  Country: VE (occurrence: VE)
  Receive Date: 20190802
  Receipt Date: 20191208
  Transmission Date: 20200122
  Serious: Yes (Hospitalization, Other)
  Sender: FDA-Public Use
  Company Number: PHHY2019VE156822

PATIENT
  Age: 54 Year
  Sex: Female
  Weight: 68 kg

DRUGS (3)
  1. GLIVEC [Suspect]
     Active Substance: IMATINIB MESYLATE
     Indication: CHRONIC MYELOID LEUKAEMIA
     Dosage: 400 MG, QD
     Route: 048
     Dates: start: 20181017
  2. LOSARTAN. [Suspect]
     Active Substance: LOSARTAN
     Indication: HYPERTENSION
     Dosage: 50 MG, QD
     Route: 048
  3. CARVEDILOL. [Suspect]
     Active Substance: CARVEDILOL
     Indication: HYPERTENSION
     Dosage: 12.5 MG, QD
     Route: 048

REACTIONS (10)
  - Nephrolithiasis [Unknown]
  - Feeling hot [Unknown]
  - Urinary tract infection [Unknown]
  - Back pain [Unknown]
  - Pyelonephritis [Unknown]
  - Pain [Unknown]
  - White blood cell count increased [Unknown]
  - Bacterial test positive [Unknown]
  - Haemoglobin urine present [Unknown]
  - Pyrexia [Unknown]

NARRATIVE: CASE EVENT DATE: 201907
